FAERS Safety Report 19050549 (Version 1)
Quarter: 2021Q1

REPORT INFORMATION
  Report Type: Spontaneous
  Country: DE (occurrence: DE)
  Receive Date: 20210324
  Receipt Date: 20210324
  Transmission Date: 20210420
  Serious: Yes (Hospitalization, Other)
  Sender: FDA-Public Use
  Company Number: DE-HIKMA PHARMACEUTICALS USA INC.-DE-H14001-21-53874

PATIENT
  Age: 56 Year
  Sex: Female
  Weight: 98 kg

DRUGS (10)
  1. SOLU?DECORTIN?H [Concomitant]
     Active Substance: PREDNISOLONE SODIUM SUCCINATE
     Indication: PREMEDICATION
     Route: 065
  2. NEOTAXAN [Concomitant]
     Active Substance: PACLITAXEL
     Indication: PRODUCT USED FOR UNKNOWN INDICATION
     Dosage: 169,5 MG IN 250 ML NACL 0,9%
     Route: 065
     Dates: start: 20201105, end: 20210205
  3. NATRIUM CHLORID [Concomitant]
     Indication: VEHICLE SOLUTION USE
     Dosage: NACL 0,9 % 1000 ML
     Route: 065
     Dates: start: 20201105, end: 20210205
  4. GRANISETRON [Concomitant]
     Active Substance: GRANISETRON
     Indication: PREMEDICATION
     Route: 065
     Dates: start: 20201105, end: 20210205
  5. CLEMASTINE [Concomitant]
     Active Substance: CLEMASTINE
     Indication: PREMEDICATION
     Route: 065
     Dates: start: 20201105, end: 20210205
  6. EASYFLEX N GLUCOSE [Concomitant]
     Indication: VEHICLE SOLUTION USE
     Route: 042
     Dates: start: 20210205
  7. EASYFLEX N GLUCOSE [Concomitant]
     Dosage: 250 ML
     Route: 042
     Dates: start: 20201105, end: 20210122
  8. RIBOCARBO?L [Suspect]
     Active Substance: CARBOPLATIN
     Dosage: 272.2 ML/30 ML
     Route: 042
     Dates: start: 20201105, end: 20210122
  9. RIBOCARBO?L [Suspect]
     Active Substance: CARBOPLATIN
     Indication: OVARIAN CANCER
     Route: 042
     Dates: start: 20210205
  10. RANITIDIN [Concomitant]
     Active Substance: RANITIDINE HYDROCHLORIDE
     Indication: PRODUCT USED FOR UNKNOWN INDICATION
     Dates: start: 20201105, end: 20210205

REACTIONS (7)
  - Flushing [Unknown]
  - Hyperhidrosis [Unknown]
  - Unresponsive to stimuli [Unknown]
  - Diarrhoea [Unknown]
  - Tachycardia [Unknown]
  - Nausea [Unknown]
  - Pupillary reflex impaired [Unknown]

NARRATIVE: CASE EVENT DATE: 20210205
